FAERS Safety Report 12405621 (Version 1)
Quarter: 2016Q2

REPORT INFORMATION
  Report Type: Spontaneous
  Country: US (occurrence: None)
  Receive Date: 20160525
  Receipt Date: 20160525
  Transmission Date: 20160815
  Serious: No
  Sender: FDA-Public Use
  Company Number: None

PATIENT
  Sex: Female

DRUGS (1)
  1. GLIPERIDE [Suspect]
     Active Substance: GLIMEPIRIDE

REACTIONS (3)
  - Dehydration [None]
  - Insomnia [None]
  - Muscle spasms [None]
